FAERS Safety Report 6843743-2 (Version None)
Quarter: 2010Q3

REPORT INFORMATION
  Report Type: 
  Country: None (occurrence: None)
  Receive Date: 20100715
  Receipt Date: 20100706
  Transmission Date: 20110219
  Serious: Yes (Death)
  Sender: FDA-Public Use
  Company Number: DE-BRISTOL-MYERS SQUIBB COMPANY-15190879

PATIENT
  Age: 85 Year
  Sex: Female
  Weight: 75 kg

DRUGS (5)
  1. METFORMIN HCL [Suspect]
     Indication: TYPE 2 DIABETES MELLITUS
  2. ISDN [Concomitant]
     Indication: CORONARY ARTERY DISEASE
     Dosage: RETARD
  3. CORVATON RETARD [Concomitant]
     Indication: CORONARY ARTERY DISEASE
  4. FUROSEMIDE [Concomitant]
     Indication: CARDIAC FAILURE
     Dosage: STRENGTH 40
  5. ALLOPURINOL [Concomitant]
     Indication: HYPERURICAEMIA

REACTIONS (2)
  - CARDIOGENIC SHOCK [None]
  - LACTIC ACIDOSIS [None]
